FAERS Safety Report 5359794-3 (Version None)
Quarter: 2007Q3

REPORT INFORMATION
  Report Type: 
  Country: None (occurrence: None)
  Receive Date: 20070530
  Receipt Date: 20070319
  Transmission Date: 20080115
  Serious: No
  Sender: FDA-Public Use
  Company Number: 2007PV031946

PATIENT
  Age: 66 Year
  Sex: Female

DRUGS (7)
  1. BYETTA [Suspect]
     Indication: TYPE 2 DIABETES MELLITUS
     Dosage: SEE IMAGE
     Route: 058
     Dates: start: 20070206, end: 20070306
  2. BYETTA [Suspect]
     Indication: TYPE 2 DIABETES MELLITUS
     Dosage: SEE IMAGE
     Route: 058
     Dates: start: 20070306
  3. COUGH SYRUP [Suspect]
     Indication: NASOPHARYNGITIS
     Dates: start: 20070201
  4. ANTIBIOTICS [Suspect]
     Indication: NASOPHARYNGITIS
     Dates: start: 20070201
  5. PREDNISONE [Suspect]
     Indication: NASOPHARYNGITIS
     Dates: start: 20070201
  6. METFORMIN HCL [Suspect]
  7. PRANDIN [Suspect]

REACTIONS (6)
  - BLOOD GLUCOSE INCREASED [None]
  - GASTROOESOPHAGEAL REFLUX DISEASE [None]
  - NASOPHARYNGITIS [None]
  - NAUSEA [None]
  - VOMITING [None]
  - WEIGHT DECREASED [None]
